FAERS Safety Report 9068586 (Version 1)
Quarter: 2013Q1

REPORT INFORMATION
  Report Type: Spontaneous
  Country: US (occurrence: None)
  Receive Date: 20130212
  Receipt Date: 20130212
  Transmission Date: 20140127
  Serious: No
  Sender: FDA-Public Use
  Company Number: None

PATIENT
  Age: 52 Year
  Sex: Male

DRUGS (1)
  1. VALCADE, NOT PROVIDED MILLENNIUM [Suspect]
     Indication: PLASMA CELL MYELOMA

REACTIONS (3)
  - Plasma cell myeloma [None]
  - Neoplasm recurrence [None]
  - Injection site reaction [None]
